FAERS Safety Report 15934799 (Version 4)
Quarter: 2019Q2

REPORT INFORMATION
  Report Type: Report from Study
  Country: US (occurrence: US)
  Receive Date: 20190207
  Receipt Date: 20190415
  Transmission Date: 20190711
  Serious: Yes (Hospitalization)
  Sender: FDA-Public Use
  Company Number: US-ACTELION-A-US2016-129919

PATIENT
  Sex: Female
  Weight: 82.99 kg

DRUGS (8)
  1. VELETRI [Suspect]
     Active Substance: EPOPROSTENOL
     Indication: PULMONARY ARTERIAL HYPERTENSION
     Dosage: 35 NG/KG, PER MIN
     Route: 042
  2. LETAIRIS [Concomitant]
     Active Substance: AMBRISENTAN
     Dosage: 10 MG
  3. RIOCIGUAT. [Concomitant]
     Active Substance: RIOCIGUAT
     Dosage: 2.5 UNK
  4. METHIMAZOLE. [Concomitant]
     Active Substance: METHIMAZOLE
     Dosage: 20 MG
  5. TORSEMIDE. [Concomitant]
     Active Substance: TORSEMIDE
     Dosage: 60 MG, BID
  6. VELETRI [Suspect]
     Active Substance: EPOPROSTENOL
     Dosage: 14 NG/KG, PER MIN
     Route: 042
  7. METHIMAZOLE. [Concomitant]
     Active Substance: METHIMAZOLE
     Dosage: 10 MG
  8. VELETRI [Suspect]
     Active Substance: EPOPROSTENOL
     Dosage: 29 NG/KG, PER MIN
     Route: 042
     Dates: start: 20151130

REACTIONS (24)
  - Pneumonia [Unknown]
  - Hyperthyroidism [Unknown]
  - Nausea [Recovered/Resolved]
  - Rash [Unknown]
  - Fluid overload [Unknown]
  - Pulmonary arterial pressure increased [Unknown]
  - Dyspnoea exertional [Unknown]
  - Dyspnoea [Unknown]
  - Flushing [Unknown]
  - Weight increased [Unknown]
  - Cardiac failure congestive [Unknown]
  - Supraventricular tachycardia [Unknown]
  - Bronchitis [Unknown]
  - Device related infection [Unknown]
  - Condition aggravated [Unknown]
  - Sleep apnoea syndrome [Unknown]
  - Fluid retention [Unknown]
  - Upper respiratory tract infection [Unknown]
  - Asthma [Unknown]
  - Acute respiratory failure [Unknown]
  - Pain in jaw [Unknown]
  - Normocytic anaemia [Unknown]
  - Pulmonary arterial hypertension [Unknown]
  - Diarrhoea [Unknown]
